FAERS Safety Report 8939845 (Version 1)
Quarter: 2012Q4

REPORT INFORMATION
  Report Type: 
  Country: DK (occurrence: DK)
  Receive Date: 20121130
  Receipt Date: 20121130
  Transmission Date: 20130627
  Serious: Yes (Hospitalization, Disabling)
  Sender: FDA-Public Use
  Company Number: DK-ABBOTT-08P-044-0440012-00

PATIENT
  Age: 75 Year
  Sex: Male

DRUGS (6)
  1. HUMIRA 40 MG/ 0.8 ML PRE-FILLED SYRINGE [Suspect]
     Indication: RHEUMATOID ARTHRITIS
     Route: 058
     Dates: start: 20050207, end: 20060814
  2. METHOTREXATE [Concomitant]
     Indication: RHEUMATOID ARTHRITIS
     Dates: start: 200001
  3. METHOTREXATE [Concomitant]
     Dates: start: 20040512
  4. METHOTREXATE [Concomitant]
     Dates: start: 20040614
  5. METHOTREXATE [Concomitant]
     Dates: start: 2004
  6. METHOTREXATE [Concomitant]
     Dates: start: 2004

REACTIONS (6)
  - Injury [Unknown]
  - Pulmonary fibrosis [Not Recovered/Not Resolved]
  - Pulmonary function test decreased [Not Recovered/Not Resolved]
  - Diarrhoea [Unknown]
  - Pneumonia [Unknown]
  - Weight decreased [Unknown]
